FAERS Safety Report 25683153 (Version 2)
Quarter: 2025Q3

REPORT INFORMATION
  Report Type: Spontaneous
  Country: JP (occurrence: JP)
  Receive Date: 20250814
  Receipt Date: 20250826
  Transmission Date: 20251021
  Serious: Yes (Other)
  Sender: Ocuvex Therapeutics
  Company Number: JP-SANTENLTD-2025-JPN-007543

PATIENT
  Age: 88 Year
  Sex: Male

DRUGS (3)
  1. OMIDENEPAG ISOPROPYL [Suspect]
     Active Substance: OMIDENEPAG ISOPROPYL
     Indication: Glaucoma
     Dosage: 1 DROP ONCE A DAY IN BOTH EYES
     Route: 047
     Dates: end: 20250603
  2. PIRENOXINE [Concomitant]
     Active Substance: PIRENOXINE
     Indication: Product used for unknown indication
     Dosage: 3 TIMES A DAY
     Route: 047
  3. PIRENOXINE [Concomitant]
     Active Substance: PIRENOXINE
     Dosage: 3 TIMES A DAY
     Route: 047

REACTIONS (3)
  - Anterior chamber fibrin [Recovered/Resolved]
  - Cataract [Unknown]
  - Contraindicated product administered [Unknown]

NARRATIVE: CASE EVENT DATE: 20250527
